FAERS Safety Report 10239684 (Version 1)
Quarter: 2014Q2

REPORT INFORMATION
  Report Type: Spontaneous
  Country: US (occurrence: None)
  Receive Date: 20140612
  Receipt Date: 20140612
  Transmission Date: 20141212
  Serious: Yes (Other)
  Sender: FDA-Public Use
  Company Number: SYM-2014-21925

PATIENT
  Age: 39 Year
  Sex: Female

DRUGS (1)
  1. XENAZINE [Suspect]
     Indication: HUNTINGTON^S DISEASE
     Dosage: 100 MG, 2 IIN 1 D, ORAL
     Route: 048
     Dates: start: 20130730

REACTIONS (1)
  - Loss of consciousness [None]
